FAERS Safety Report 4521161-X (Version None)
Quarter: 2004Q4

REPORT INFORMATION
  Report Type: 
  Country: None (occurrence: None)
  Receive Date: 20041206
  Receipt Date: 20041125
  Transmission Date: 20050328
  Serious: Yes (Life-Threatening)
  Sender: FDA-Public Use
  Company Number: 2004099232

PATIENT
  Age: 45 Year
  Sex: Female

DRUGS (3)
  1. FELDENE [Suspect]
     Indication: BACK PAIN
     Dosage: (20 MG), ORAL
     Route: 048
     Dates: start: 20040901, end: 20040901
  2. ETORICOXIB (ETORICOXIB) [Suspect]
     Indication: BACK PAIN
     Dosage: 60 MG, ORAL
     Route: 048
     Dates: start: 20040915, end: 20040930
  3. THIOCOLCHICOSIDE (THIOCOLCHICOSIDE) [Concomitant]

REACTIONS (3)
  - DRUG INTERACTION [None]
  - PEPTIC ULCER PERFORATION [None]
  - PERITONITIS [None]
